FAERS Safety Report 4421019-0 (Version None)
Quarter: 2004Q3

REPORT INFORMATION
  Report Type: 
  Country: None (occurrence: None)
  Receive Date: 20040809
  Receipt Date: 20040727
  Transmission Date: 20050211
  Serious: Yes (Hospitalization)
  Sender: FDA-Public Use
  Company Number: 4425

PATIENT
  Age: 61 Year
  Sex: Male

DRUGS (5)
  1. HYCAMTIN [Suspect]
     Dosage: 1.85MG PER DAY
     Route: 042
     Dates: start: 20040607, end: 20040709
  2. HALCION [Concomitant]
     Indication: HYPNOTHERAPY
  3. PURSENNID [Concomitant]
  4. SM [Concomitant]
  5. MEDICON [Concomitant]
     Indication: ANTITUSSIVE THERAPY

REACTIONS (2)
  - INTERSTITIAL LUNG DISEASE [None]
  - PYREXIA [None]
